FAERS Safety Report 20581345 (Version 1)
Quarter: 2022Q1

REPORT INFORMATION
  Report Type: Spontaneous
  Country: US (occurrence: US)
  Receive Date: 20220311
  Receipt Date: 20220311
  Transmission Date: 20220424
  Serious: Yes (Other)
  Sender: FDA-Public Use
  Company Number: US-MLMSERVICE-20220224-3398754-1

PATIENT
  Age: 10 Week
  Sex: Female

DRUGS (1)
  1. PROPRANOLOL [Suspect]
     Active Substance: PROPRANOLOL HYDROCHLORIDE
     Indication: Infantile haemangioma
     Route: 065

REACTIONS (7)
  - Drug withdrawal syndrome neonatal [Unknown]
  - Disease recurrence [Unknown]
  - Drug intolerance [Unknown]
  - Agitation [Unknown]
  - Diarrhoea [Unknown]
  - Feeding disorder [Unknown]
  - Insomnia [Unknown]
